FAERS Safety Report 4633733-2 (Version None)
Quarter: 2005Q2

REPORT INFORMATION
  Report Type: 
  Country: None (occurrence: None)
  Receive Date: 20050331
  Receipt Date: 20050107
  Transmission Date: 20051028
  Serious: Yes (Other)
  Sender: FDA-Public Use
  Company Number: 200510101BCC

PATIENT
  Age: 25 Year
  Sex: Male
  Weight: 81.6475 kg

DRUGS (3)
  1. ALEVE (CAPLET) [Suspect]
     Indication: HEADACHE
     Dosage: 440 MG, ONCE, ORAL
     Route: 048
     Dates: start: 20041231
  2. ALEVE (CAPLET) [Suspect]
     Indication: MUSCLE STRAIN
     Dosage: 440 MG, ONCE, ORAL
     Route: 048
     Dates: start: 20041231
  3. ALEVE (CAPLET) [Suspect]
     Indication: MUSCULOSKELETAL STIFFNESS
     Dosage: 440 MG, ONCE, ORAL
     Route: 048
     Dates: start: 20041231

REACTIONS (7)
  - HYPERSENSITIVITY [None]
  - OEDEMA PERIPHERAL [None]
  - OROPHARYNGEAL SWELLING [None]
  - PULMONARY CONGESTION [None]
  - SWELLING FACE [None]
  - SWOLLEN TONGUE [None]
  - URTICARIA [None]
